FAERS Safety Report 24550657 (Version 1)
Quarter: 2024Q4

REPORT INFORMATION
  Report Type: Spontaneous
  Country: JP (occurrence: JP)
  Receive Date: 20241025
  Receipt Date: 20241025
  Transmission Date: 20250115
  Serious: No
  Sender: JAZZ
  Company Number: JP-JAZZ PHARMACEUTICALS-2023-JP-025131

PATIENT
  Age: 43 Year
  Sex: Male

DRUGS (2)
  1. DEFITELIO [Suspect]
     Active Substance: DEFIBROTIDE SODIUM
     Indication: Venoocclusive liver disease
     Dosage: 800 MILLIGRAM, QD
     Route: 042
     Dates: start: 20231117, end: 20240109
  2. PROGRAF [Concomitant]
     Active Substance: TACROLIMUS
     Dosage: 1.75 MILLIGRAM
     Dates: start: 20231116, end: 20231118

REACTIONS (1)
  - Haematuria [Unknown]
